FAERS Safety Report 6943672-X (Version None)
Quarter: 2010Q3

REPORT INFORMATION
  Report Type: 
  Country: None (occurrence: None)
  Receive Date: 20100826
  Receipt Date: 20100816
  Transmission Date: 20110219
  Serious: Yes (Other)
  Sender: FDA-Public Use
  Company Number: DE-GENENTECH-305572

PATIENT

DRUGS (1)
  1. RITUXIMAB [Suspect]
     Indication: B-CELL LYMPHOMA
     Dosage: 375 MG/M2, Q3M
     Route: 065

REACTIONS (6)
  - ARRHYTHMIA [None]
  - INFECTION [None]
  - LEUKOPENIA [None]
  - NEUROPATHY PERIPHERAL [None]
  - NON-HODGKIN'S LYMPHOMA RECURRENT [None]
  - PAIN [None]
